FAERS Safety Report 7558334-8 (Version None)
Quarter: 2011Q2

REPORT INFORMATION
  Report Type: 
  Country: None (occurrence: None)
  Receive Date: 20110620
  Receipt Date: 20110615
  Transmission Date: 20111010
  Serious: No
  Sender: FDA-Public Use
  Company Number: US-TEVA-286794USA

PATIENT
  Sex: Female
  Weight: 70.37 kg

DRUGS (2)
  1. PLAN B ONE-STEP [Suspect]
     Indication: POST COITAL CONTRACEPTION
     Dosage: 1.5 MILLIGRAM;
     Route: 048
     Dates: start: 20110525, end: 20110525
  2. PLAN B ONE-STEP [Suspect]
     Dosage: 1.5 MILLIGRAM;
     Route: 048
     Dates: start: 20110611, end: 20110611

REACTIONS (8)
  - CHILLS [None]
  - PAROSMIA [None]
  - FATIGUE [None]
  - NAUSEA [None]
  - FEELING ABNORMAL [None]
  - MENSTRUATION IRREGULAR [None]
  - HEADACHE [None]
  - PYREXIA [None]
